FAERS Safety Report 4977760-4 (Version None)
Quarter: 2006Q2

REPORT INFORMATION
  Report Type: 
  Country: None (occurrence: None)
  Receive Date: 20060420
  Receipt Date: 20060330
  Transmission Date: 20061013
  Serious: Yes (Other)
  Sender: FDA-Public Use
  Company Number: US-AMGEN-US174593

PATIENT
  Sex: Male
  Weight: 81.7 kg

DRUGS (14)
  1. ARANESP [Suspect]
     Indication: RENAL FAILURE CHRONIC
     Dates: start: 20050301, end: 20060127
  2. PRINIVIL [Concomitant]
  3. GLYBURIDE [Concomitant]
  4. ZOCOR [Concomitant]
  5. VITAMIN E [Concomitant]
  6. ASPIRIN [Concomitant]
  7. LASIX [Concomitant]
  8. IMDUR [Concomitant]
  9. NORVASC [Concomitant]
  10. FLOMAX [Concomitant]
  11. FOLIC ACID [Concomitant]
  12. PLETAL [Concomitant]
  13. NIFEREX [Concomitant]
  14. HECTORAL [Concomitant]
     Dates: start: 20060309

REACTIONS (2)
  - DERMATITIS EXFOLIATIVE [None]
  - HYPERSENSITIVITY [None]
